FAERS Safety Report 20628055 (Version 2)
Quarter: 2022Q2

REPORT INFORMATION
  Report Type: Spontaneous
  Country: LB (occurrence: LB)
  Receive Date: 20220323
  Receipt Date: 20220405
  Transmission Date: 20220721
  Serious: Yes (Other)
  Sender: FDA-Public Use
  Company Number: LB-PFIZER INC-202200386795

PATIENT
  Age: 55 Year
  Sex: Male

DRUGS (1)
  1. SOMATROPIN [Suspect]
     Active Substance: SOMATROPIN
     Indication: Supplementation therapy
     Dosage: 10 INJECTIONS IN TOTAL
     Route: 030

REACTIONS (4)
  - Acromegaly [Recovered/Resolved]
  - Tenosynovitis [Recovered/Resolved]
  - Trigger finger [Recovered/Resolved]
  - Drug abuse [Unknown]
